FAERS Safety Report 15653590 (Version 1)
Quarter: 2018Q4

REPORT INFORMATION
  Report Type: Spontaneous
  Country: NO (occurrence: NO)
  Receive Date: 20181124
  Receipt Date: 20181124
  Transmission Date: 20190205
  Serious: Yes (Life-Threatening)
  Sender: FDA-Public Use
  Company Number: NO-TEVA-2018-NO-978210

PATIENT
  Age: 67 Year
  Sex: Male

DRUGS (5)
  1. FOLIC ACID. [Concomitant]
     Active Substance: FOLIC ACID
     Dosage: 1 MILLIGRAM DAILY; 1 MG PER DAY EXCEPT ONE DAY OF THE WEEK
     Route: 048
  2. MAGNESIUM [Concomitant]
     Active Substance: MAGNESIUM
     Dosage: 300 MILLIGRAM DAILY;
  3. PARACET [Concomitant]
     Active Substance: ACETAMINOPHEN
     Route: 048
  4. METHOTREXATE. [Suspect]
     Active Substance: METHOTREXATE
     Indication: RHEUMATOID ARTHRITIS
     Dosage: 8 TABLETS PER WEEK
     Route: 048
     Dates: start: 2013, end: 201707
  5. VIMOVO [Concomitant]
     Active Substance: ESOMEPRAZOLE MAGNESIUM\NAPROXEN
     Dosage: 2 DOSAGE FORMS DAILY;
     Route: 048

REACTIONS (1)
  - Acute myeloid leukaemia [Recovered/Resolved with Sequelae]

NARRATIVE: CASE EVENT DATE: 201708
